FAERS Safety Report 6155682-3 (Version None)
Quarter: 2009Q2

REPORT INFORMATION
  Report Type: 
  Country: None (occurrence: None)
  Receive Date: 20090415
  Receipt Date: 20090409
  Transmission Date: 20091009
  Serious: Yes (Death)
  Sender: FDA-Public Use
  Company Number: A0777792A

PATIENT
  Age: 69 Year
  Sex: Male

DRUGS (10)
  1. COREG CR [Suspect]
     Indication: HYPERTENSION
     Route: 048
  2. INSPRA [Concomitant]
  3. KLOR-CON [Concomitant]
  4. PACERONE [Concomitant]
  5. LASIX [Concomitant]
  6. ZOCOR [Concomitant]
  7. ALOPURINOL [Concomitant]
  8. LEVOTHYROXINE SODIUM [Concomitant]
  9. GLIPIZIDE [Concomitant]
  10. ALBUTEROL [Concomitant]

REACTIONS (1)
  - DEATH [None]
